FAERS Safety Report 5246195-1 (Version None)
Quarter: 2007Q1

REPORT INFORMATION
  Report Type: 
  Country: None (occurrence: None)
  Receive Date: 20070220
  Receipt Date: 20070209
  Transmission Date: 20070707
  Serious: Yes (Hospitalization)
  Sender: FDA-Public Use
  Company Number: 2007JP000563

PATIENT
  Age: 83 Year
  Sex: Male

DRUGS (3)
  1. VESICARE [Suspect]
     Indication: HYPERTONIC BLADDER
     Dosage: 5 MG, UID/QD, ORAL
     Route: 048
     Dates: start: 20070126
  2. URIEF [Concomitant]
  3. HACHIMIJIO-GAN (HERBAL EXTRACT NOS) [Concomitant]

REACTIONS (3)
  - CONSTIPATION [None]
  - FEELING ABNORMAL [None]
  - URINARY RETENTION [None]
